FAERS Safety Report 23552885 (Version 1)
Quarter: 2024Q1

REPORT INFORMATION
  Report Type: Report from Study
  Country: US (occurrence: US)
  Receive Date: 20240222
  Receipt Date: 20240222
  Transmission Date: 20240410
  Serious: Yes (Other)
  Sender: FDA-Public Use
  Company Number: US-JNJFOC-20240242739

PATIENT
  Age: 38 Year
  Sex: Male

DRUGS (3)
  1. SPRAVATO [Suspect]
     Active Substance: ESKETAMINE
     Indication: Depression
     Dosage: 56 MG, 1 TOTAL DOSES
     Dates: start: 20230819, end: 20230819
  2. SPRAVATO [Suspect]
     Active Substance: ESKETAMINE
     Dosage: 84  MG, 32 TOTAL DOSES
     Dates: start: 20230822, end: 20240205
  3. SPRAVATO [Suspect]
     Active Substance: ESKETAMINE
     Dosage: 84  MG, 1 TOTAL DOSES
     Dates: start: 20240212, end: 20240212

REACTIONS (2)
  - Pain [Unknown]
  - Paraesthesia [Unknown]

NARRATIVE: CASE EVENT DATE: 20240212
